FAERS Safety Report 17969778 (Version 3)
Quarter: 2020Q3

REPORT INFORMATION
  Report Type: Spontaneous
  Country: DE (occurrence: DE)
  Receive Date: 20200701
  Receipt Date: 20200901
  Transmission Date: 20201103
  Serious: Yes (Other)
  Sender: FDA-Public Use
  Company Number: DE-JNJFOC-20200637180

PATIENT
  Age: 30 Year
  Sex: Male

DRUGS (6)
  1. LAMOTRIGINE. [Concomitant]
     Active Substance: LAMOTRIGINE
     Dosage: DAILY DOSE 200 MG
  2. VALPROIC ACID. [Interacting]
     Active Substance: VALPROIC ACID
     Indication: SEIZURE
     Dosage: DAILY DOSE { 2000 MG DAILY
     Route: 065
  3. RIVAROXABAN [Interacting]
     Active Substance: RIVAROXABAN
     Dosage: 20 MG
     Route: 048
  4. RIVAROXABAN [Suspect]
     Active Substance: RIVAROXABAN
     Indication: DEEP VEIN THROMBOSIS
     Dosage: 15 MG
     Route: 048
  5. VALPROIC ACID. [Interacting]
     Active Substance: VALPROIC ACID
     Dosage: DAILY DOSE 2000 MG
     Route: 065
  6. LAMOTRIGINE. [Concomitant]
     Active Substance: LAMOTRIGINE
     Dosage: DAILY DOSE 400 MG

REACTIONS (5)
  - Anticoagulation drug level decreased [Recovered/Resolved]
  - Deep vein thrombosis [Recovered/Resolved]
  - Off label use [Unknown]
  - Deep vein thrombosis [Unknown]
  - Drug interaction [Unknown]

NARRATIVE: CASE EVENT DATE: 201807
